FAERS Safety Report 24252462 (Version 1)
Quarter: 2024Q3

REPORT INFORMATION
  Report Type: Report from Study
  Country: US (occurrence: US)
  Receive Date: 20240827
  Receipt Date: 20240827
  Transmission Date: 20241017
  Serious: Yes (Other)
  Sender: ABBVIE
  Company Number: US-ABBVIE-5889527

PATIENT
  Sex: Male

DRUGS (1)
  1. VENCLEXTA [Suspect]
     Active Substance: VENETOCLAX
     Indication: Acute myeloid leukaemia (in remission)
     Dosage: STRENGTH: 100 MG,?TAKE 4 TABLETS BY MOUTH DAILY FOR 14 DAYS WITH FOOD AND WATER DO NOT CRUSH, CHE...
     Route: 048
     Dates: end: 202408

REACTIONS (2)
  - General physical health deterioration [Unknown]
  - Arthralgia [Unknown]
